FAERS Safety Report 21299195 (Version 1)
Quarter: 2022Q3

REPORT INFORMATION
  Report Type: Spontaneous
  Country: US (occurrence: US)
  Receive Date: 20220906
  Receipt Date: 20220906
  Transmission Date: 20221027
  Serious: No
  Sender: FDA-Public Use
  Company Number: US-PFIZER INC-PV202200056876

PATIENT

DRUGS (3)
  1. LYRICA [Suspect]
     Active Substance: PREGABALIN
     Indication: Complex regional pain syndrome
     Dosage: 150 MG  4 TIMES DAILY
  2. LYRICA [Suspect]
     Active Substance: PREGABALIN
     Dosage: 150 MG  6  TIMES DAILY
  3. LYRICA [Suspect]
     Active Substance: PREGABALIN
     Dosage: 150MG  8 TIMES DAILY

REACTIONS (6)
  - Pain [Unknown]
  - Burning sensation [Unknown]
  - Stress [Unknown]
  - Overdose [Unknown]
  - Off label use [Unknown]
  - Intentional product use issue [Unknown]
